FAERS Safety Report 10257870 (Version 1)
Quarter: 2014Q2

REPORT INFORMATION
  Report Type: Spontaneous
  Country: ES (occurrence: ES)
  Receive Date: 20140625
  Receipt Date: 20140625
  Transmission Date: 20141212
  Serious: Yes (Other)
  Sender: FDA-Public Use
  Company Number: ES-BRISTOL-MYERS SQUIBB COMPANY-21059381

PATIENT
  Age: 14 Year
  Sex: Male

DRUGS (7)
  1. ARIPIPRAZOLE [Suspect]
     Indication: GENERALISED ANXIETY DISORDER
     Dosage: NOV13-UNKN: 10MG
  2. ARIPIPRAZOLE [Suspect]
     Indication: PSYCHOTIC DISORDER
     Dosage: NOV13-UNKN: 10MG
  3. ARIPIPRAZOLE [Suspect]
     Indication: SCHIZOPHRENIA
     Dosage: NOV13-UNKN: 10MG
  4. ARIPIPRAZOLE [Suspect]
     Indication: EMOTIONAL DISORDER OF CHILDHOOD
     Dosage: NOV13-UNKN: 10MG
  5. ARIPIPRAZOLE [Suspect]
     Indication: DISSOCIATIVE DISORDER
     Dosage: NOV13-UNKN: 10MG
  6. SERTRALINE [Concomitant]
     Dosage: TOTAL DOSE: 100MG
  7. CLORAZEPATE [Concomitant]
     Dosage: TOTAL DOSE: 30MG

REACTIONS (6)
  - Self injurious behaviour [Unknown]
  - Abnormal behaviour [Unknown]
  - Suicide attempt [Unknown]
  - Aggression [Unknown]
  - Mania [Unknown]
  - Off label use [Unknown]
